FAERS Safety Report 8007510-9 (Version None)
Quarter: 2011Q4

REPORT INFORMATION
  Report Type: 
  Country: None (occurrence: None)
  Receive Date: 20111221
  Receipt Date: 20111205
  Transmission Date: 20120403
  Serious: Yes (Death, Hospitalization)
  Sender: FDA-Public Use
  Company Number: 2011PROUSA00812

PATIENT
  Age: 70 Year
  Sex: Male
  Weight: 85.2762 kg

DRUGS (3)
  1. PROVENGE [Suspect]
     Indication: PROSTATE CANCER METASTATIC
     Dosage: 250 ML, SINGLE, INTRAVENOUS
     Route: 042
     Dates: start: 20111121, end: 20111121
  2. PROVENGE [Suspect]
     Indication: PROSTATE CANCER METASTATIC
     Dosage: 250 ML, SINGLE, INTRAVENOUS
     Route: 042
     Dates: start: 20111107, end: 20111107
  3. PROVENGE [Suspect]

REACTIONS (8)
  - ACUTE MYOCARDIAL INFARCTION [None]
  - FATIGUE [None]
  - MULTI-ORGAN FAILURE [None]
  - LOSS OF CONSCIOUSNESS [None]
  - CORONARY ARTERY OCCLUSION [None]
  - HYPOTENSION [None]
  - ARTERIOSCLEROSIS [None]
  - PULMONARY CONGESTION [None]
